FAERS Safety Report 19242512 (Version 13)
Quarter: 2022Q2

REPORT INFORMATION
  Report Type: Report from Study
  Country: BR (occurrence: BR)
  Receive Date: 20210511
  Receipt Date: 20220611
  Transmission Date: 20220721
  Serious: Yes (Disabling, Other)
  Sender: FDA-Public Use
  Company Number: NVSC2021BR100371

PATIENT
  Age: 49 Year
  Sex: Male
  Weight: 70 kg

DRUGS (19)
  1. COSENTYX [Suspect]
     Active Substance: SECUKINUMAB
     Indication: Ankylosing spondylitis
     Dosage: 150 MG, QW (STOP DATE: AFTER 5 WEEKS)
     Route: 058
     Dates: start: 20200925, end: 202010
  2. COSENTYX [Suspect]
     Active Substance: SECUKINUMAB
     Dosage: 150 MG
     Route: 065
     Dates: start: 202010
  3. COSENTYX [Suspect]
     Active Substance: SECUKINUMAB
     Dosage: UNK, QW (WEEKLY)
     Route: 065
     Dates: start: 20201025
  4. COSENTYX [Suspect]
     Active Substance: SECUKINUMAB
     Dosage: 150 MG, QMO
     Route: 065
  5. COSENTYX [Suspect]
     Active Substance: SECUKINUMAB
     Dosage: 150 MG, QMO
     Route: 058
     Dates: start: 202011
  6. COSENTYX [Suspect]
     Active Substance: SECUKINUMAB
     Dosage: UNK
     Route: 065
     Dates: start: 202102
  7. COSENTYX [Suspect]
     Active Substance: SECUKINUMAB
     Dosage: 150 MG, QW
     Route: 058
     Dates: start: 20210713
  8. COSENTYX [Suspect]
     Active Substance: SECUKINUMAB
     Dosage: UNK (LAST DOSE)
     Route: 065
     Dates: start: 20210810
  9. COSENTYX [Suspect]
     Active Substance: SECUKINUMAB
     Dosage: UNK, QMO
     Route: 065
  10. AZULFIDINE [Concomitant]
     Active Substance: SULFASALAZINE
     Indication: Ankylosing spondylitis
     Dosage: 1 DF, Q12H
     Route: 048
     Dates: start: 2018
  11. AZULFIDINE [Concomitant]
     Active Substance: SULFASALAZINE
     Dosage: 2 DF
     Route: 065
     Dates: start: 2019
  12. ALGY-FLANDERIL [Concomitant]
     Indication: Ankylosing spondylitis
     Dosage: 1 DF, Q8H
     Route: 048
     Dates: start: 202009, end: 20210310
  13. ALGY-FLANDERIL [Concomitant]
     Dosage: 2 DF, Q8H (STOPPED FOR 2 DAYS)
     Route: 048
     Dates: start: 20210310
  14. ALGY-FLANDERIL [Concomitant]
     Dosage: 1 DF, Q8H
     Route: 048
     Dates: start: 20210316
  15. QUETIAPINE [Concomitant]
     Active Substance: QUETIAPINE
     Indication: Insomnia
     Dosage: 1 DF, QN
     Route: 048
     Dates: start: 2016
  16. FLURAZEPAM HYDROCHLORIDE [Concomitant]
     Active Substance: FLURAZEPAM HYDROCHLORIDE
     Indication: Insomnia
     Dosage: 1 DF, QN
     Route: 048
     Dates: start: 2016
  17. AMITRIPTYLINE [Concomitant]
     Active Substance: AMITRIPTYLINE
     Indication: Insomnia
     Dosage: 1 DF, QN
     Route: 048
     Dates: start: 2016
  18. ADALIMUMAB [Concomitant]
     Active Substance: ADALIMUMAB
     Indication: Product used for unknown indication
     Dosage: UNK
     Route: 065
     Dates: start: 202010, end: 202011
  19. VALDA [Concomitant]
     Indication: Sinusitis
     Dosage: UNK, QD
     Route: 048
     Dates: start: 2019

REACTIONS (27)
  - Gait disturbance [Recovered/Resolved]
  - Vision blurred [Unknown]
  - Cataract [Unknown]
  - Haematochezia [Recovered/Resolved]
  - Haematochezia [Recovered/Resolved]
  - Arthralgia [Not Recovered/Not Resolved]
  - Neck pain [Not Recovered/Not Resolved]
  - Pain in extremity [Not Recovered/Not Resolved]
  - Back pain [Not Recovered/Not Resolved]
  - Neuralgia [Not Recovered/Not Resolved]
  - Pain [Not Recovered/Not Resolved]
  - Asthenia [Not Recovered/Not Resolved]
  - Disease progression [Unknown]
  - Malaise [Recovering/Resolving]
  - Skin discolouration [Not Recovered/Not Resolved]
  - Eating disorder [Recovering/Resolving]
  - Insomnia [Not Recovered/Not Resolved]
  - Ocular discomfort [Not Recovered/Not Resolved]
  - Dysphonia [Recovering/Resolving]
  - Peripheral swelling [Unknown]
  - Spinal deformity [Unknown]
  - Visual impairment [Not Recovered/Not Resolved]
  - Chronic sinusitis [Recovered/Resolved]
  - Product availability issue [Unknown]
  - Product dose omission issue [Unknown]
  - Incorrect dose administered [Recovered/Resolved]
  - Drug ineffective [Unknown]

NARRATIVE: CASE EVENT DATE: 20210101
